FAERS Safety Report 25097722 (Version 1)
Quarter: 2025Q1

REPORT INFORMATION
  Report Type: Report from Study
  Country: CN (occurrence: CN)
  Receive Date: 20250320
  Receipt Date: 20250320
  Transmission Date: 20250409
  Serious: Yes (Hospitalization)
  Sender: ROCHE
  Company Number: CN-ROCHE-10000228768

PATIENT
  Age: 81 Year
  Sex: Female
  Weight: 45 kg

DRUGS (1)
  1. POLIVY [Suspect]
     Active Substance: POLATUZUMAB VEDOTIN-PIIQ
     Indication: Diffuse large B-cell lymphoma
     Dosage: DOSAGE FORM: LYOPHILIZED POWDER CAKE
     Route: 042
     Dates: start: 20250117

REACTIONS (1)
  - Mycoplasma test positive [Recovering/Resolving]

NARRATIVE: CASE EVENT DATE: 20250215
